FAERS Safety Report 17259377 (Version 2)
Quarter: 2020Q1

REPORT INFORMATION
  Report Type: Spontaneous
  Country: US (occurrence: US)
  Receive Date: 20200110
  Receipt Date: 20200131
  Transmission Date: 20200409
  Serious: No
  Sender: FDA-Public Use
  Company Number: US-SA-2020SA006693

PATIENT
  Age: 68 Year
  Sex: Female
  Weight: 86.1 kg

DRUGS (1)
  1. DUPIXENT [Suspect]
     Active Substance: DUPILUMAB
     Indication: DERMATITIS ATOPIC
     Dosage: 300 MG, QOW
     Route: 058
     Dates: start: 201910

REACTIONS (6)
  - Ocular discomfort [Unknown]
  - Alopecia [Unknown]
  - Fatigue [Unknown]
  - Eye pain [Unknown]
  - Dry eye [Unknown]
  - Ocular hyperaemia [Unknown]
